FAERS Safety Report 5767916-5 (Version None)
Quarter: 2008Q2

REPORT INFORMATION
  Report Type: 
  Country: None (occurrence: None)
  Receive Date: 20080612
  Receipt Date: 20080605
  Transmission Date: 20081010
  Serious: Yes (Life-Threatening, Hospitalization)
  Sender: FDA-Public Use
  Company Number: CZ-PFIZER INC-2008041626

PATIENT
  Age: 64 Year
  Sex: Male

DRUGS (5)
  1. ALPRAZOLAM [Suspect]
  2. MIRTAZAPINE [Suspect]
  3. PROTHIADEN [Suspect]
  4. LEXAURIN [Suspect]
  5. DIAZEPAM ^SLOVAKOFARMA^ [Suspect]

REACTIONS (1)
  - NEUROLEPTIC MALIGNANT SYNDROME [None]
